FAERS Safety Report 8359442-4 (Version None)
Quarter: 2012Q2

REPORT INFORMATION
  Report Type: 
  Country: None (occurrence: None)
  Receive Date: 20120515
  Receipt Date: 20120507
  Transmission Date: 20120825
  Serious: Yes (Other)
  Sender: FDA-Public Use
  Company Number: RO-SANOFI-AVENTIS-2012SA032112

PATIENT
  Age: 24 Year
  Sex: Male

DRUGS (1)
  1. INSULIN GLARGINE [Suspect]
     Indication: TYPE 1 DIABETES MELLITUS
     Route: 065

REACTIONS (5)
  - DYSPNOEA [None]
  - SARCOIDOSIS [None]
  - CHEST PAIN [None]
  - LYMPHADENOPATHY [None]
  - ANGIOTENSIN CONVERTING ENZYME INCREASED [None]
